FAERS Safety Report 5952388-8 (Version None)
Quarter: 2008Q4

REPORT INFORMATION
  Report Type: 
  Country: None (occurrence: None)
  Receive Date: 20081113
  Receipt Date: 20081104
  Transmission Date: 20090506
  Serious: Yes (Other)
  Sender: FDA-Public Use
  Company Number: AU-PFIZER INC-2008086300

PATIENT
  Sex: Male
  Weight: 74 kg

DRUGS (6)
  1. VIAGRA [Suspect]
     Indication: ERECTILE DYSFUNCTION
     Route: 048
  2. LIPITOR [Concomitant]
     Route: 048
  3. MINAX [Concomitant]
     Route: 048
  4. NEXIUM [Concomitant]
     Route: 048
  5. ASPIRIN [Concomitant]
     Route: 048
  6. GABAPENTIN [Concomitant]

REACTIONS (1)
  - PROSTATE CANCER [None]
